FAERS Safety Report 14750405 (Version 1)
Quarter: 2018Q2

REPORT INFORMATION
  Report Type: Spontaneous
  Country: US (occurrence: US)
  Receive Date: 20180412
  Receipt Date: 20180412
  Transmission Date: 20180711
  Serious: No
  Sender: FDA-Public Use
  Company Number: US-ELI_LILLY_AND_COMPANY-US201804004744

PATIENT

DRUGS (3)
  1. CYRAMZA [Suspect]
     Active Substance: RAMUCIRUMAB
     Indication: COLON NEOPLASM
     Dosage: UNK, UNKNOWN
     Route: 065
  2. LEUCOVORIN                         /00566701/ [Concomitant]
     Active Substance: LEUCOVORIN
     Indication: COLON NEOPLASM
  3. IRINOTECAN [Concomitant]
     Active Substance: IRINOTECAN
     Indication: COLON NEOPLASM

REACTIONS (1)
  - Anxiety [Unknown]
